FAERS Safety Report 20673822 (Version 3)
Quarter: 2022Q3

REPORT INFORMATION
  Report Type: Report from Study
  Country: JP (occurrence: JP)
  Receive Date: 20220405
  Receipt Date: 20220912
  Transmission Date: 20221027
  Serious: Yes (Death, Hospitalization, Other)
  Sender: FDA-Public Use
  Company Number: JP-UCBSA-2022019045

PATIENT
  Age: 61 Year
  Sex: Female
  Weight: 50 kg

DRUGS (23)
  1. LACOSAMIDE [Suspect]
     Active Substance: LACOSAMIDE
     Indication: Simple partial seizures
     Dosage: 50 MILLIGRAM, 2X/DAY (BID)
     Route: 048
     Dates: start: 20210228, end: 20210311
  2. LACOSAMIDE [Suspect]
     Active Substance: LACOSAMIDE
     Dosage: 75 MILLIGRAM, 2X/DAY (BID)
     Route: 048
     Dates: start: 20210312, end: 20210318
  3. LACOSAMIDE [Suspect]
     Active Substance: LACOSAMIDE
     Dosage: 100 MILLIGRAM, 2X/DAY (BID)
     Route: 048
     Dates: start: 20210319, end: 20210407
  4. LACOSAMIDE [Suspect]
     Active Substance: LACOSAMIDE
     Dosage: 125 MILLIGRAM, 2X/DAY (BID)
     Route: 048
     Dates: start: 20210408, end: 20210415
  5. LACOSAMIDE [Suspect]
     Active Substance: LACOSAMIDE
     Dosage: 150 MILLIGRAM, 2X/DAY (BID)
     Route: 048
     Dates: start: 20210416, end: 20211229
  6. AVASTIN [Suspect]
     Active Substance: BEVACIZUMAB
     Indication: Product used for unknown indication
     Dosage: 10 MILLIGRAM/KILOGRAM, 2X/WEEK
     Dates: start: 20210129, end: 20211203
  7. CEFMETAZOLE SODIUM [Suspect]
     Active Substance: CEFMETAZOLE SODIUM
     Indication: Product used for unknown indication
     Dosage: 3000MG DAILY
     Dates: start: 20211213, end: 20211219
  8. LEVETIRACETAM [Concomitant]
     Active Substance: LEVETIRACETAM
     Indication: Simple partial seizures
     Dosage: 2000MG PER DAY
     Route: 048
     Dates: start: 20201104, end: 20211228
  9. FYCOMPA [Concomitant]
     Active Substance: PERAMPANEL
     Indication: Simple partial seizures
     Dosage: 4MG PERDAY
     Route: 048
     Dates: start: 20201112, end: 20211228
  10. FAMOTIDINE [Concomitant]
     Active Substance: FAMOTIDINE
     Indication: Product used for unknown indication
     Dosage: 20MG PER DAY
     Route: 048
     Dates: end: 20211228
  11. MAGNESIUM OXIDE [Concomitant]
     Active Substance: MAGNESIUM OXIDE
     Indication: Product used for unknown indication
     Dosage: 990MG PER DAY
     Route: 048
     Dates: end: 20211223
  12. TEMOZOLOMIDE [Concomitant]
     Active Substance: TEMOZOLOMIDE
     Indication: Product used for unknown indication
     Dosage: 220MG
     Route: 048
  13. TEMOZOLOMIDE [Concomitant]
     Active Substance: TEMOZOLOMIDE
     Dosage: 240MG
     Route: 048
     Dates: end: 20211123
  14. RAMOSETRON HYDROCHLORIDE [Concomitant]
     Active Substance: RAMOSETRON HYDROCHLORIDE
     Indication: Prophylaxis
     Dosage: 0.1MG
     Route: 048
     Dates: end: 20211123
  15. BETAMETHASONE [Concomitant]
     Active Substance: BETAMETHASONE
     Indication: Prophylaxis
     Dosage: 0.5MG PER DAY
     Route: 048
     Dates: start: 20210303, end: 20211228
  16. LIPITOR [Concomitant]
     Active Substance: ATORVASTATIN CALCIUM
     Indication: Product used for unknown indication
     Dosage: 10MG PER DAY
     Route: 048
     Dates: start: 20210430, end: 20211223
  17. BETAHISTINE MESILATE [Concomitant]
     Active Substance: BETAHISTINE MESILATE
     Indication: Product used for unknown indication
     Dosage: 8MG PER DAY
     Route: 048
     Dates: start: 20210709, end: 20210921
  18. ALLELOCK [Concomitant]
     Active Substance: OLOPATADINE HYDROCHLORIDE
     Indication: Product used for unknown indication
     Dosage: 5MG PER DAY
     Route: 048
     Dates: start: 20210709, end: 20211223
  19. MICARDIS [Concomitant]
     Active Substance: TELMISARTAN
     Indication: Product used for unknown indication
     Dosage: 20MG PER DAY
     Route: 048
     Dates: start: 20210726, end: 20211228
  20. DIETARY SUPPLEMENT\PROBIOTICS [Concomitant]
     Active Substance: DIETARY SUPPLEMENT\PROBIOTICS
     Indication: Product used for unknown indication
     Dosage: 2G PER DAY
     Route: 048
     Dates: start: 20211220, end: 20211228
  21. BETAMETHASONE SODIUM PHOSPHATE [Concomitant]
     Active Substance: BETAMETHASONE SODIUM PHOSPHATE
     Indication: Product used for unknown indication
     Dosage: UNK
     Dates: start: 20211213, end: 20211227
  22. MIDAZOLAM [Concomitant]
     Active Substance: MIDAZOLAM
     Indication: Simple partial seizures
     Dosage: 10MG PER DAY
     Dates: start: 20211217, end: 20211217
  23. GLYMACKEN [Concomitant]
     Indication: Product used for unknown indication
     Dosage: 400ML PER DAY
     Dates: start: 20211221, end: 20211227

REACTIONS (9)
  - Brain neoplasm [Fatal]
  - Urinary tract infection [Recovered/Resolved]
  - Brain oedema [Not Recovered/Not Resolved]
  - Hypercholesterolaemia [Recovering/Resolving]
  - Dizziness [Recovered/Resolved]
  - Pruritus [Recovered/Resolved]
  - Hypertension [Recovering/Resolving]
  - Diarrhoea [Recovering/Resolving]
  - Hypoalbuminaemia [Not Recovered/Not Resolved]

NARRATIVE: CASE EVENT DATE: 20210430
